FAERS Safety Report 25267762 (Version 6)
Quarter: 2025Q4

REPORT INFORMATION
  Report Type: Spontaneous
  Country: EU (occurrence: EU)
  Receive Date: 20250505
  Receipt Date: 20251010
  Transmission Date: 20260119
  Serious: Yes (Death, Life-Threatening, Hospitalization)
  Sender: MYLAN
  Company Number: None

PATIENT
  Age: 59 Year
  Sex: Female
  Weight: 68 kg

DRUGS (5)
  1. MIRTAZAPINE [Suspect]
     Active Substance: MIRTAZAPINE
     Indication: Depression
     Dosage: 1350 MILLIGRAM (ESTIMATED A TOTAL OVERDOSE)
     Dates: start: 20230411, end: 20230412
  2. ZOPICLONE [Suspect]
     Active Substance: ZOPICLONE
     Indication: Anxiety disorder
     Dosage: 105 MILLIGRAM (ESTIMATED A TOTAL OVERDOSE)
     Dates: start: 20230411, end: 20230412
  3. VENLAFAXINE [Suspect]
     Active Substance: VENLAFAXINE HYDROCHLORIDE
     Indication: Depression
     Dosage: UNK
  4. ACETAMINOPHEN [Suspect]
     Active Substance: ACETAMINOPHEN
     Indication: Pain
     Dosage: 38000 MILLIGRAM (ESTIMATED A TOTAL OVERDOSE)
     Dates: start: 20230411, end: 20230412
  5. OXAZEPAM [Suspect]
     Active Substance: OXAZEPAM
     Indication: Anxiety disorder
     Dosage: 11 GRAM (TOTAL)
     Dates: start: 20230411, end: 20230412

REACTIONS (16)
  - Multiple organ dysfunction syndrome [Fatal]
  - Bezoar [Fatal]
  - Completed suicide [Fatal]
  - Hypothermia [Fatal]
  - Miosis [Fatal]
  - Acute respiratory distress syndrome [Fatal]
  - Electrocardiogram QT prolonged [Fatal]
  - Toxicity to various agents [Fatal]
  - Intentional overdose [Fatal]
  - Drug ineffective [Fatal]
  - Serotonin syndrome [Fatal]
  - Respiratory failure [Fatal]
  - Haemodynamic instability [Fatal]
  - Coma [Unknown]
  - Shock [Unknown]
  - Diarrhoea [Unknown]

NARRATIVE: CASE EVENT DATE: 20230411
